FAERS Safety Report 5270426-5 (Version None)
Quarter: 2007Q1

REPORT INFORMATION
  Report Type: 
  Country: None (occurrence: None)
  Receive Date: 20070320
  Receipt Date: 20070308
  Transmission Date: 20070707
  Serious: Yes (Other)
  Sender: FDA-Public Use
  Company Number: NL-PFIZER INC-2007018922

PATIENT
  Sex: Male
  Weight: 76 kg

DRUGS (5)
  1. LIPITOR [Suspect]
     Route: 048
  2. TEGRETOL [Concomitant]
     Route: 048
  3. PERINDOPRIL ERBUMINE [Concomitant]
     Route: 048
  4. TAMSULOSIN HCL [Concomitant]
     Route: 048
  5. ALFUZOSIN [Concomitant]
     Route: 048

REACTIONS (3)
  - AMNESIA [None]
  - BRAIN TUMOUR OPERATION [None]
  - EPILEPSY [None]
